FAERS Safety Report 14100822 (Version 1)
Quarter: 2017Q4

REPORT INFORMATION
  Report Type: Spontaneous
  Country: CH (occurrence: CH)
  Receive Date: 20171018
  Receipt Date: 20171018
  Transmission Date: 20180321
  Serious: Yes (Hospitalization)
  Sender: FDA-Public Use
  Company Number: CH-ROCHE-2008347

PATIENT
  Age: 86 Year
  Sex: Female

DRUGS (11)
  1. ATORVASTATIN [Suspect]
     Active Substance: ATORVASTATIN
     Route: 048
     Dates: start: 20170921, end: 20170922
  2. QUETIAPIN [Suspect]
     Active Substance: QUETIAPINE
     Indication: PRODUCT USED FOR UNKNOWN INDICATION
     Route: 048
     Dates: start: 20170922, end: 20170922
  3. VITAMIN D3 [Concomitant]
     Active Substance: CHOLECALCIFEROL
     Route: 065
  4. TRIATEC (SWITZERLAND) [Concomitant]
     Route: 065
  5. CIPROXIN [Suspect]
     Active Substance: CIPROFLOXACIN
     Indication: CYSTITIS
     Dosage: MOST RECENT DOSE:24/SEP/2017
     Route: 048
     Dates: start: 20170921
  6. ASPIRIN CARDIO [Concomitant]
     Active Substance: ASPIRIN
     Route: 065
  7. BRILIQUE [Concomitant]
     Active Substance: TICAGRELOR
     Route: 065
  8. TOREM [Concomitant]
     Active Substance: TORSEMIDE
     Route: 065
  9. FRAGMIN [Concomitant]
     Active Substance: DALTEPARIN SODIUM
     Route: 065
     Dates: start: 20170921, end: 20170928
  10. ROCEPHIN [Suspect]
     Active Substance: CEFTRIAXONE SODIUM
     Indication: CYSTITIS
     Route: 041
     Dates: start: 20170921, end: 20170921
  11. ATORVASTATIN [Suspect]
     Active Substance: ATORVASTATIN
     Indication: ACUTE MYOCARDIAL INFARCTION
     Route: 048
     Dates: start: 20170321, end: 20170322

REACTIONS (3)
  - Drug-induced liver injury [Recovering/Resolving]
  - Eosinophilia [Unknown]
  - Cholestatic liver injury [Recovering/Resolving]

NARRATIVE: CASE EVENT DATE: 20170921
